FAERS Safety Report 8979960 (Version 3)
Quarter: 2013Q4

REPORT INFORMATION
  Report Type: Report from Study
  Country: US (occurrence: US)
  Receive Date: 20121221
  Receipt Date: 20131003
  Transmission Date: 20140711
  Serious: Yes (Life-Threatening, Hospitalization, Other)
  Sender: FDA-Public Use
  Company Number: US-JNJFOC-20121208286

PATIENT
  Age: 18 Year
  Sex: Female
  Weight: 76.3 kg

DRUGS (46)
  1. REMICADE [Suspect]
     Indication: COLITIS ULCERATIVE
     Route: 042
     Dates: start: 20090601
  2. 5-ASA [Concomitant]
     Route: 054
  3. AZATHIOPRINE [Concomitant]
  4. OMEPRAZOLE [Concomitant]
  5. PREDNISONE [Concomitant]
  6. LUTERA (LEVONORGESTREL AND ETHINYL ESTRADIOL) [Concomitant]
  7. ZOFRAN [Concomitant]
  8. DIFLUCAN [Concomitant]
  9. SEPTRA [Concomitant]
  10. NITROFURANTOIN [Concomitant]
  11. GABAPENTIN [Concomitant]
  12. LOVENOX [Concomitant]
  13. HYDROMORPHONE [Concomitant]
  14. DILAUDID [Concomitant]
  15. 5% DEXTROSE IN 0.45% NORMAL SALINE [Concomitant]
  16. POTASSIUM CHLORIDE [Concomitant]
  17. MORPHINE [Concomitant]
  18. PHENERGAN [Concomitant]
  19. NORMAL SALINE [Concomitant]
  20. PROTONIX [Concomitant]
  21. FLEET [Concomitant]
  22. TYLENOL [Concomitant]
  23. IMODIUM [Concomitant]
  24. SIMETHICONE [Concomitant]
  25. LIDOCAINE PATCH [Concomitant]
  26. TOTAL PARENTERAL NUTRITION [Concomitant]
  27. LIPIDS [Concomitant]
  28. ZOSYN [Concomitant]
  29. PEPCID [Concomitant]
  30. VANCOMYCIN [Concomitant]
  31. LIDOCAINE [Concomitant]
  32. DIATRIZOATE SODIUM W/MEGLUMINE DIATRIZOATE [Concomitant]
  33. ISOVUE [Concomitant]
  34. SILVER NITRATE [Concomitant]
  35. FENTANYL [Concomitant]
  36. VERSED [Concomitant]
  37. MAGNESIUM OXIDE [Concomitant]
  38. ISOFLURANE [Concomitant]
  39. LACTATED RINGERS [Concomitant]
  40. PLASMA PROTEIN FRACTION [Concomitant]
  41. PACKED RED BLOOD CELLS [Concomitant]
  42. CALCIUM CHLORIDE [Concomitant]
  43. GLYCOPYRROLATE [Concomitant]
  44. NEOSTIGMINE [Concomitant]
  45. ONDANSETRON [Concomitant]
  46. PHENYLEPHRINE [Concomitant]

REACTIONS (5)
  - Megacolon [Recovered/Resolved with Sequelae]
  - Intestinal perforation [Recovered/Resolved with Sequelae]
  - Localised intraabdominal fluid collection [Recovered/Resolved with Sequelae]
  - Pneumoperitoneum [Recovered/Resolved with Sequelae]
  - Ascites [Recovered/Resolved with Sequelae]
